FAERS Safety Report 14360523 (Version 2)
Quarter: 2018Q1

REPORT INFORMATION
  Report Type: Spontaneous
  Country: CA (occurrence: CA)
  Receive Date: 20180106
  Receipt Date: 20180119
  Transmission Date: 20180509
  Serious: Yes (Other)
  Sender: FDA-Public Use
  Company Number: CA-AMGEN-CANSP2017193187

PATIENT
  Age: 77 Year
  Sex: Female

DRUGS (5)
  1. METHOTREXATE. [Suspect]
     Active Substance: METHOTREXATE
     Indication: RHEUMATOID ARTHRITIS
     Dosage: UNK
     Route: 065
  2. NAPROXEN. [Concomitant]
     Active Substance: NAPROXEN
     Indication: RHEUMATOID ARTHRITIS
     Dosage: UNK
     Route: 065
  3. ENBREL [Suspect]
     Active Substance: ETANERCEPT
     Indication: RHEUMATOID ARTHRITIS
     Dosage: 50 MG, QWK
     Route: 065
  4. HUMIRA [Suspect]
     Active Substance: ADALIMUMAB
     Indication: RHEUMATOID ARTHRITIS
     Dosage: 40 MG, Q2WK
     Route: 058
     Dates: start: 201612, end: 20171212
  5. TYLENOL [Concomitant]
     Active Substance: ACETAMINOPHEN
     Indication: RHEUMATOID ARTHRITIS
     Dosage: UNK, AS NECESSARY
     Route: 065

REACTIONS (15)
  - Hand deformity [Not Recovered/Not Resolved]
  - Arthritis [Unknown]
  - Shoulder arthroplasty [Unknown]
  - Interstitial lung disease [Not Recovered/Not Resolved]
  - Joint swelling [Unknown]
  - Chest X-ray abnormal [Unknown]
  - Rheumatoid arthritis [Not Recovered/Not Resolved]
  - Thyroidectomy [Unknown]
  - Rash [Unknown]
  - Respiratory tract congestion [Unknown]
  - Musculoskeletal stiffness [Unknown]
  - Nasopharyngitis [Not Recovered/Not Resolved]
  - Foot deformity [Not Recovered/Not Resolved]
  - Arthralgia [Unknown]
  - Drug ineffective [Unknown]

NARRATIVE: CASE EVENT DATE: 20161206
